FAERS Safety Report 8361309-2 (Version None)
Quarter: 2012Q2

REPORT INFORMATION
  Report Type: 
  Country: None (occurrence: None)
  Receive Date: 20120514
  Receipt Date: 20120424
  Transmission Date: 20120825
  Serious: Yes (Death, Hospitalization)
  Sender: FDA-Public Use
  Company Number: 2012SP022139

PATIENT
  Age: 71 Year
  Sex: Female

DRUGS (1)
  1. TEMOZOLOMIDE [Suspect]
     Indication: GLIOBLASTOMA MULTIFORME
     Dosage: 75 MG/M2;

REACTIONS (3)
  - APLASTIC ANAEMIA [None]
  - PERFORMANCE STATUS DECREASED [None]
  - PANCYTOPENIA [None]
